FAERS Safety Report 18899960 (Version 1)
Quarter: 2021Q1

REPORT INFORMATION
  Report Type: Report from Study
  Country: US (occurrence: US)
  Receive Date: 20210216
  Receipt Date: 20210216
  Transmission Date: 20210420
  Serious: Yes (Death, Other)
  Sender: FDA-Public Use
  Company Number: US-CHIESI-2021CHF00511

PATIENT
  Age: 62 Year
  Sex: Male
  Weight: 72 kg

DRUGS (14)
  1. METOPROLOL TARTRATE. [Concomitant]
     Active Substance: METOPROLOL TARTRATE
     Indication: PRODUCT USED FOR UNKNOWN INDICATION
     Dosage: UNK
     Route: 065
  2. FENOFIBRATE. [Concomitant]
     Active Substance: FENOFIBRATE
     Indication: PRODUCT USED FOR UNKNOWN INDICATION
     Dosage: UNK
     Route: 065
  3. FOLIC ACID. [Concomitant]
     Active Substance: FOLIC ACID
     Indication: PRODUCT USED FOR UNKNOWN INDICATION
     Dosage: UNK
     Route: 065
  4. DEFERIPRONE [Suspect]
     Active Substance: DEFERIPRONE
     Indication: BONE MARROW FAILURE
     Dosage: 500 MILLIGRAM, TID
     Route: 048
     Dates: start: 20190914, end: 20191010
  5. DIGOXIN. [Concomitant]
     Active Substance: DIGOXIN
     Indication: PRODUCT USED FOR UNKNOWN INDICATION
     Dosage: UNK
     Route: 065
  6. CALCIUM ACETATE. [Concomitant]
     Active Substance: CALCIUM ACETATE
     Indication: PRODUCT USED FOR UNKNOWN INDICATION
     Dosage: UNK
     Route: 065
  7. DEFERIPRONE [Suspect]
     Active Substance: DEFERIPRONE
     Indication: APLASTIC ANAEMIA
     Dosage: 21 MILLIGRAM/KILOGRAM, TID
     Route: 048
     Dates: start: 20191011, end: 20210129
  8. ISOSORBIDE MONONITRATE (ER) [Concomitant]
     Indication: PRODUCT USED FOR UNKNOWN INDICATION
     Dosage: UNK
     Route: 065
  9. TRAZODONE HYDROCHLORIDE. [Concomitant]
     Active Substance: TRAZODONE HYDROCHLORIDE
     Indication: PRODUCT USED FOR UNKNOWN INDICATION
     Dosage: UNK
     Route: 065
  10. PREDNISONE. [Concomitant]
     Active Substance: PREDNISONE
     Indication: PRODUCT USED FOR UNKNOWN INDICATION
     Dosage: UNK
     Route: 065
  11. DEFERIPRONE [Suspect]
     Active Substance: DEFERIPRONE
     Indication: HAEMOLYTIC ANAEMIA
     Dosage: 25 MILLIGRAM/KILOGRAM, BID
     Route: 048
  12. DEFERIPRONE [Suspect]
     Active Substance: DEFERIPRONE
     Dosage: 12 MILLIGRAM/KILOGRAM, BID
     Route: 048
  13. DEFERIPRONE [Suspect]
     Active Substance: DEFERIPRONE
     Dosage: 6 MILLIGRAM/KILOGRAM, BID
     Route: 048
     Dates: start: 20170901
  14. CYCLOSPORINE. [Concomitant]
     Active Substance: CYCLOSPORINE
     Indication: PRODUCT USED FOR UNKNOWN INDICATION
     Dosage: UNK
     Route: 065

REACTIONS (1)
  - Death [Fatal]

NARRATIVE: CASE EVENT DATE: 20210129
